FAERS Safety Report 8224897-2 (Version None)
Quarter: 2012Q1

REPORT INFORMATION
  Report Type: 
  Country: None (occurrence: None)
  Receive Date: 20120319
  Receipt Date: 20120308
  Transmission Date: 20120608
  Serious: Yes (Death, Hospitalization)
  Sender: FDA-Public Use
  Company Number: 2012PL000048

PATIENT
  Age: 15 Year
  Sex: Male

DRUGS (1)
  1. AZATHIOPRINE [Suspect]
     Indication: CROHN'S DISEASE
     Dosage: 175 MG;QD

REACTIONS (9)
  - DECREASED APPETITE [None]
  - GASTROINTESTINAL ULCER [None]
  - GASTROINTESTINAL HAEMORRHAGE [None]
  - PANCYTOPENIA [None]
  - POST TRANSPLANT LYMPHOPROLIFERATIVE DISORDER [None]
  - RENAL IMPAIRMENT [None]
  - COAGULOPATHY [None]
  - ACUTE HEPATIC FAILURE [None]
  - INTESTINAL PERFORATION [None]
